APPROVED DRUG PRODUCT: MAGNESIUM SULFATE IN PLASTIC CONTAINER
Active Ingredient: MAGNESIUM SULFATE
Strength: 4GM/50ML (80MG/ML)
Dosage Form/Route: INJECTABLE;INJECTION
Application: N020309 | Product #002 | TE Code: AP
Applicant: HOSPIRA INC
Approved: Jun 24, 1994 | RLD: Yes | RS: Yes | Type: RX